FAERS Safety Report 26165303 (Version 1)
Quarter: 2025Q4

REPORT INFORMATION
  Report Type: Spontaneous
  Country: US (occurrence: US)
  Receive Date: 20251216
  Receipt Date: 20251216
  Transmission Date: 20260117
  Serious: Yes (Life-Threatening, Hospitalization, Other)
  Sender: PFIZER
  Company Number: US-PFIZER INC-202500239788

PATIENT
  Age: 43 Year
  Sex: Female

DRUGS (4)
  1. LINEZOLID [Suspect]
     Active Substance: LINEZOLID
     Indication: Leukocytosis
     Dosage: UNK
  2. LINEZOLID [Suspect]
     Active Substance: LINEZOLID
     Indication: Eosinophilia
  3. AZTREONAM [Suspect]
     Active Substance: AZTREONAM
     Indication: Leukocytosis
     Dosage: UNK
  4. AZTREONAM [Suspect]
     Active Substance: AZTREONAM
     Indication: Eosinophilia

REACTIONS (1)
  - Drug reaction with eosinophilia and systemic symptoms [Recovering/Resolving]
